FAERS Safety Report 4364681-3 (Version None)
Quarter: 2004Q2

REPORT INFORMATION
  Report Type: 
  Country: None (occurrence: None)
  Receive Date: 20040526
  Receipt Date: 20040319
  Transmission Date: 20050107
  Serious: No
  Sender: FDA-Public Use
  Company Number: US-GLAXOSMITHKLINE-A0503533A

PATIENT
  Sex: Female

DRUGS (6)
  1. FLOLAN [Suspect]
     Indication: ILL-DEFINED DISORDER
  2. COUMADIN [Concomitant]
  3. LEVOXYL [Concomitant]
  4. ADALAT [Concomitant]
  5. PREMPRO [Concomitant]
  6. WELLBUTRIN [Concomitant]

REACTIONS (2)
  - ANAEMIA [None]
  - THROMBOCYTOPENIA [None]
